FAERS Safety Report 23873918 (Version 1)
Quarter: 2024Q2

REPORT INFORMATION
  Report Type: Spontaneous
  Country: US (occurrence: None)
  Receive Date: 20240517
  Receipt Date: 20240517
  Transmission Date: 20240716
  Serious: Yes (Disabling)
  Sender: FDA-Public Use
  Company Number: None

PATIENT
  Age: 71 Year
  Sex: Female
  Weight: 74.25 kg

DRUGS (12)
  1. ARIPIPRAZOLE [Suspect]
     Active Substance: ARIPIPRAZOLE
     Indication: Depression
     Dosage: BY MOUTH  DAILY ?
     Route: 050
     Dates: start: 20170228, end: 20230710
  2. PROPRANOLOL [Suspect]
     Active Substance: PROPRANOLOL HYDROCHLORIDE
  3. METOPROLOL [Concomitant]
  4. LISINOPRIL [Concomitant]
  5. AUSTEDO [Concomitant]
  6. SERTRALINE [Concomitant]
  7. FISH OIL [Concomitant]
  8. VITAMIN B12 [Concomitant]
     Active Substance: CYANOCOBALAMIN
  9. BABY ASPIRIN [Concomitant]
  10. VITAMIN D3 [Concomitant]
     Active Substance: CHOLECALCIFEROL
  11. multivitamin [Concomitant]
  12. ultra triple action joint health [Concomitant]

REACTIONS (7)
  - Tongue disorder [None]
  - Memory impairment [None]
  - Tardive dyskinesia [None]
  - Decreased appetite [None]
  - Glossodynia [None]
  - Swollen tongue [None]
  - Speech disorder [None]

NARRATIVE: CASE EVENT DATE: 20230724
